FAERS Safety Report 16588388 (Version 2)
Quarter: 2019Q3

REPORT INFORMATION
  Report Type: Report from Study
  Country: None (occurrence: US)
  Receive Date: 20190717
  Receipt Date: 20190817
  Transmission Date: 20191004
  Serious: Yes (Hospitalization, Other)
  Sender: FDA-Public Use
  Company Number: DE-ABBVIE-18S-062-2541564-00

PATIENT
  Sex: Male

DRUGS (21)
  1. DUODOPA [Suspect]
     Active Substance: CARBIDOPA\LEVODOPA
     Indication: PARKINSON^S DISEASE
     Dosage: MD 7.5 ML / CRD 2.4 ML/HR / ED 2.0 ML
     Route: 050
     Dates: start: 20181018, end: 201810
  2. DUODOPA [Suspect]
     Active Substance: CARBIDOPA\LEVODOPA
     Dosage: MD 7.5 ML; CRD 3.4 ML/HR; CRN 3.4 ML/HR; ED 5.0 ML
     Route: 050
     Dates: start: 20190403, end: 2019
  3. LEVOCOMP [Concomitant]
     Active Substance: CARBIDOPA\LEVODOPA
     Indication: PRODUCT USED FOR UNKNOWN INDICATION
     Dosage: NOCTE
  4. THIAMAZOLE [Concomitant]
     Active Substance: METHIMAZOLE
     Indication: PRODUCT USED FOR UNKNOWN INDICATION
  5. DUODOPA [Suspect]
     Active Substance: CARBIDOPA\LEVODOPA
     Dosage: MD 7.5 ML / CRD 2.5 ML/HR / ED 2.0 ML
     Route: 050
     Dates: start: 201810, end: 201811
  6. DUODOPA [Suspect]
     Active Substance: CARBIDOPA\LEVODOPA
     Dosage: MD 5 ML; CRD 3.9 ML/HR; CRN 3.9 ML/HR; ED 1 ML
     Route: 050
     Dates: start: 2019
  7. RIVASTIGMIN [Concomitant]
     Active Substance: RIVASTIGMINE
     Indication: PRODUCT USED FOR UNKNOWN INDICATION
  8. DUODART [Concomitant]
     Active Substance: DUTASTERIDE\TAMSULOSIN
     Indication: PRODUCT USED FOR UNKNOWN INDICATION
  9. FOLIC ACID. [Concomitant]
     Active Substance: FOLIC ACID
     Indication: PRODUCT USED FOR UNKNOWN INDICATION
  10. DUODOPA [Suspect]
     Active Substance: CARBIDOPA\LEVODOPA
     Dosage: MD 5 ML; CRD 3.6 ML/HR; CRN 3.2 ML/HR; ED 2 ML
     Route: 050
     Dates: start: 2019, end: 2019
  11. LISINOPRIL. [Concomitant]
     Active Substance: LISINOPRIL
     Indication: PRODUCT USED FOR UNKNOWN INDICATION
  12. VITAMIN B12 [Concomitant]
     Active Substance: CYANOCOBALAMIN
     Indication: PRODUCT USED FOR UNKNOWN INDICATION
  13. DUODOPA [Suspect]
     Active Substance: CARBIDOPA\LEVODOPA
     Dosage: MD: 7.5ML; CRD: 2.9ML/H; ED: 2.0ML
     Route: 050
     Dates: start: 20181130
  14. DUODOPA [Suspect]
     Active Substance: CARBIDOPA\LEVODOPA
     Dosage: MD: 7.5 ML; CRD: 3.0 ML/HR; ED: 2.0 ML
     Route: 050
  15. DUODOPA [Suspect]
     Active Substance: CARBIDOPA\LEVODOPA
     Dosage: MD: 7.5 ML, CRD: 3.2 ML/H, CRN: 3.2 ML/H, ED: 2 ML
     Route: 050
     Dates: start: 2019, end: 20190305
  16. SERTRALIN [Concomitant]
     Active Substance: SERTRALINE HYDROCHLORIDE
     Indication: PRODUCT USED FOR UNKNOWN INDICATION
  17. CLOZAPIN [Concomitant]
     Active Substance: CLOZAPINE
     Indication: PRODUCT USED FOR UNKNOWN INDICATION
  18. DUODOPA [Suspect]
     Active Substance: CARBIDOPA\LEVODOPA
     Dosage: MD 7.5 ML / CRD 2.8 ML/HR / ED 2.0 ML
     Route: 050
     Dates: start: 201811, end: 20181129
  19. DUODOPA [Suspect]
     Active Substance: CARBIDOPA\LEVODOPA
     Route: 050
     Dates: end: 2019
  20. DUODOPA [Suspect]
     Active Substance: CARBIDOPA\LEVODOPA
     Dosage: MD: 7.5 ML, CRD: 3.4 ML/H, CRN: 3.4 ML/H, ED: 2 ML
     Route: 050
     Dates: start: 20190305, end: 2019
  21. DUODOPA [Suspect]
     Active Substance: CARBIDOPA\LEVODOPA
     Dosage: MD 7.5 ML; CRD 3.5 ML/HR; CRN 3.5 ML/HR; ED 5.0 ML
     Route: 050
     Dates: start: 2019, end: 20190403

REACTIONS (8)
  - Restlessness [Not Recovered/Not Resolved]
  - Muscle spasms [Not Recovered/Not Resolved]
  - Aggression [Not Recovered/Not Resolved]
  - Screaming [Unknown]
  - Personality change [Not Recovered/Not Resolved]
  - Fall [Recovered/Resolved]
  - Mobility decreased [Recovering/Resolving]
  - Hypokinesia [Not Recovered/Not Resolved]

NARRATIVE: CASE EVENT DATE: 2018
